FAERS Safety Report 7067747-2 (Version None)
Quarter: 2010Q4

REPORT INFORMATION
  Report Type: 
  Country: None (occurrence: None)
  Receive Date: 20101006
  Receipt Date: 20100928
  Transmission Date: 20110411
  Serious: Yes (Hospitalization)
  Sender: FDA-Public Use
  Company Number: WSDF_00675

PATIENT
  Sex: Male
  Weight: 100 kg

DRUGS (5)
  1. WINRHO SDF LIQUID [Suspect]
     Indication: IDIOPATHIC THROMBOCYTOPENIC PURPURA
     Dosage: (75 UG/KG TOTAL INTRAVENOUS) (INTRAVENOUS) (INTRAVENOUS)
     Route: 042
     Dates: start: 20070914, end: 20070914
  2. WINRHO SDF LIQUID [Suspect]
     Indication: IDIOPATHIC THROMBOCYTOPENIC PURPURA
     Dosage: (75 UG/KG TOTAL INTRAVENOUS) (INTRAVENOUS) (INTRAVENOUS)
     Route: 042
     Dates: start: 20070914, end: 20070914
  3. WINRHO SDF LIQUID [Suspect]
     Indication: IDIOPATHIC THROMBOCYTOPENIC PURPURA
     Dosage: (75 UG/KG TOTAL INTRAVENOUS) (INTRAVENOUS) (INTRAVENOUS)
     Route: 042
     Dates: start: 20070914, end: 20070914
  4. WINRHO SDF LIQUID [Suspect]
  5. WINRHO SDF LIQUID [Suspect]

REACTIONS (17)
  - BLOOD GLUCOSE ABNORMAL [None]
  - CARDIAC MURMUR [None]
  - EPSTEIN-BARR VIRUS INFECTION [None]
  - FLUID OVERLOAD [None]
  - HAEMOLYTIC ANAEMIA [None]
  - HYPOTHYROIDISM [None]
  - INTRAVASCULAR HAEMOLYSIS [None]
  - JAUNDICE [None]
  - MALARIA [None]
  - RALES [None]
  - RENAL FAILURE ACUTE [None]
  - SINUS ARRHYTHMIA [None]
  - SINUS BRADYCARDIA [None]
  - SLEEP APNOEA SYNDROME [None]
  - SPLENOMEGALY [None]
  - STRESS [None]
  - TACHYCARDIA [None]
